FAERS Safety Report 5722696-4 (Version None)
Quarter: 2008Q2

REPORT INFORMATION
  Report Type: 
  Country: None (occurrence: None)
  Receive Date: 20080429
  Receipt Date: 20080415
  Transmission Date: 20081010
  Serious: Yes (Other)
  Sender: FDA-Public Use
  Company Number: FR-ASTRAZENECA-2008CG00635

PATIENT
  Age: 67 Year
  Sex: Male

DRUGS (7)
  1. CRESTOR [Suspect]
     Indication: DYSLIPIDAEMIA
     Route: 048
     Dates: start: 20071001
  2. ATORVASTATIN CALCIUM [Concomitant]
     Route: 048
     Dates: end: 20070801
  3. RENITEC [Concomitant]
     Route: 048
  4. ATHYMIL [Concomitant]
     Route: 048
  5. ZOXAN [Concomitant]
  6. STILNOX [Concomitant]
  7. ALLOPURINOL [Concomitant]
     Route: 048

REACTIONS (1)
  - PANCREATIC ENZYMES INCREASED [None]
